FAERS Safety Report 8192568-7 (Version None)
Quarter: 2012Q1

REPORT INFORMATION
  Report Type: 
  Country: None (occurrence: None)
  Receive Date: 20120308
  Receipt Date: 20120228
  Transmission Date: 20120608
  Serious: Yes (Death, Disabling)
  Sender: FDA-Public Use
  Company Number: JP-GE HEALTHCARE MEDICAL DIAGNOSTICS-MSTR-NO-1201S-0009

PATIENT
  Sex: Male
  Weight: 65 kg

DRUGS (4)
  1. KETOPROFEN [Concomitant]
  2. PREDNISOLONE (PREDONINE) [Concomitant]
     Dates: start: 20110603, end: 20111107
  3. METASTRON [Suspect]
     Indication: METASTATIC PAIN
     Route: 042
     Dates: start: 20111114, end: 20111114
  4. ARNICA MONTANA TINCTURE (DOC) [Concomitant]

REACTIONS (4)
  - WHITE BLOOD CELL COUNT DECREASED [None]
  - ANAEMIA [None]
  - PLATELET COUNT DECREASED [None]
  - DISSEMINATED INTRAVASCULAR COAGULATION [None]
